FAERS Safety Report 11864952 (Version 5)
Quarter: 2018Q4

REPORT INFORMATION
  Report Type: Spontaneous
  Country: US (occurrence: US)
  Receive Date: 20151223
  Receipt Date: 20181015
  Transmission Date: 20190204
  Serious: No
  Sender: FDA-Public Use
  Company Number: US-PFIZER INC-2015442491

PATIENT
  Age: 9 Year
  Sex: Male

DRUGS (4)
  1. GENOTROPIN [Suspect]
     Active Substance: SOMATROPIN
     Dosage: 0.7 MG, UNK
     Route: 058
  2. GENOTROPIN [Suspect]
     Active Substance: SOMATROPIN
     Dosage: 1.2 MG, DAILY
     Route: 058
  3. GENOTROPIN [Suspect]
     Active Substance: SOMATROPIN
     Dosage: 0.8 MG, 1X/DAY
     Route: 058
     Dates: start: 20150926
  4. GENOTROPIN [Suspect]
     Active Substance: SOMATROPIN
     Dosage: 1.3 MG, DAILY
     Route: 058
     Dates: start: 20150926

REACTIONS (5)
  - Dyspnoea [Unknown]
  - Product dose omission [Unknown]
  - Hypersensitivity [Unknown]
  - Epistaxis [Unknown]
  - Headache [Unknown]
